APPROVED DRUG PRODUCT: STRIBILD
Active Ingredient: COBICISTAT; ELVITEGRAVIR; EMTRICITABINE; TENOFOVIR DISOPROXIL FUMARATE
Strength: 150MG;150MG;200MG;300MG
Dosage Form/Route: TABLET;ORAL
Application: N203100 | Product #001
Applicant: GILEAD SCIENCES INC
Approved: Aug 27, 2012 | RLD: Yes | RS: Yes | Type: RX

PATENTS:
Patent 8148374 | Expires: Sep 3, 2029
Patent 7176220 | Expires: Aug 27, 2026
Patent 9891239 | Expires: Sep 3, 2029
Patent 10039718 | Expires: Oct 6, 2032
Patent 8981103 | Expires: Oct 26, 2026
Patent 7176220*PED | Expires: Feb 27, 2027
Patent 7635704*PED | Expires: Apr 26, 2027
Patent 8148374*PED | Expires: Mar 3, 2030
Patent 8633219*PED | Expires: Oct 30, 2030
Patent 10039718*PED | Expires: Apr 6, 2033
Patent 9891239*PED | Expires: Mar 3, 2030
Patent 8981103*PED | Expires: Apr 26, 2027
Patent 8633219 | Expires: Apr 30, 2030
Patent 7635704 | Expires: Oct 26, 2026